FAERS Safety Report 15383762 (Version 1)
Quarter: 2018Q3

REPORT INFORMATION
  Report Type: Spontaneous
  Country: CA (occurrence: CA)
  Receive Date: 20180913
  Receipt Date: 20180913
  Transmission Date: 20181010
  Serious: Yes (Disabling, Other)
  Sender: FDA-Public Use
  Company Number: CN-ASTRAZENECA-2018SF12876

PATIENT
  Age: 61 Year
  Sex: Female
  Weight: 70 kg

DRUGS (6)
  1. ATACAND [Concomitant]
     Active Substance: CANDESARTAN CILEXETIL
     Indication: DIURETIC THERAPY
     Dosage: UNKNOWN
  2. TECTA [Suspect]
     Active Substance: PANTOPRAZOLE MAGNESIUM
     Indication: HIATUS HERNIA
     Route: 048
     Dates: start: 20100317, end: 20160707
  3. ADVIL [Concomitant]
     Active Substance: IBUPROFEN
     Dosage: UNKNOWN
  4. NEXIUM [Suspect]
     Active Substance: ESOMEPRAZOLE MAGNESIUM
     Indication: HIATUS HERNIA
     Route: 048
     Dates: start: 2015
  5. VITAMIN D [Concomitant]
     Active Substance: CHOLECALCIFEROL
     Dosage: UNK
     Route: 065
  6. NEXIUM [Suspect]
     Active Substance: ESOMEPRAZOLE MAGNESIUM
     Indication: HIATUS HERNIA
     Route: 048
     Dates: start: 2015

REACTIONS (6)
  - Limb discomfort [Not Recovered/Not Resolved]
  - Muscle spasms [Not Recovered/Not Resolved]
  - Mobility decreased [Not Recovered/Not Resolved]
  - Gait disturbance [Not Recovered/Not Resolved]
  - Bone pain [Not Recovered/Not Resolved]
  - Dysstasia [Not Recovered/Not Resolved]
